FAERS Safety Report 4975673-5 (Version None)
Quarter: 2006Q2

REPORT INFORMATION
  Report Type: 
  Country: None (occurrence: None)
  Receive Date: 20060411
  Receipt Date: 20060327
  Transmission Date: 20061013
  Serious: Yes (Other)
  Sender: FDA-Public Use
  Company Number: 2006-00685

PATIENT
  Age: 71 Year
  Sex: Male
  Weight: 83 kg

DRUGS (1)
  1. VELCADE [Suspect]
     Indication: THYROID CANCER METASTATIC
     Dosage: 1.30 MG/M2, IV BOLUS
     Route: 040
     Dates: start: 20051107, end: 20060119

REACTIONS (2)
  - LUNG INFILTRATION [None]
  - PNEUMONITIS [None]
